FAERS Safety Report 5916828-2 (Version None)
Quarter: 2008Q4

REPORT INFORMATION
  Report Type: 
  Country: None (occurrence: None)
  Receive Date: 20081013
  Receipt Date: 20081001
  Transmission Date: 20090506
  Serious: Yes (Other)
  Sender: FDA-Public Use
  Company Number: VE-PFIZER INC-2008081188

PATIENT
  Sex: Male

DRUGS (6)
  1. CHANTIX [Suspect]
     Indication: SMOKING CESSATION THERAPY
     Route: 048
     Dates: start: 20080729, end: 20080819
  2. CLOZAPINE [Concomitant]
     Indication: SCHIZOPHRENIA
     Route: 048
     Dates: start: 19980101
  3. ALL OTHER THERAPEUTIC PRODUCTS [Concomitant]
     Indication: SCHIZOPHRENIA
     Route: 048
     Dates: start: 19980101
  4. PAXIL [Concomitant]
     Indication: DEPRESSION
     Route: 048
     Dates: start: 20040101
  5. PAXIL [Concomitant]
     Indication: OBSESSIVE THOUGHTS
  6. LEXOTANIL [Concomitant]
     Indication: DEPRESSION
     Route: 048
     Dates: start: 19980101

REACTIONS (4)
  - DIZZINESS [None]
  - EMOTIONAL DISTRESS [None]
  - SEDATION [None]
  - THINKING ABNORMAL [None]
